FAERS Safety Report 25601262 (Version 1)
Quarter: 2025Q3

REPORT INFORMATION
  Report Type: Spontaneous
  Country: US (occurrence: US)
  Receive Date: 20250724
  Receipt Date: 20250724
  Transmission Date: 20251021
  Serious: Yes (Other)
  Sender: AMGEN
  Company Number: US-AMGEN-USASP2025142069

PATIENT
  Age: 21 Year
  Sex: Male

DRUGS (2)
  1. PREDNISONE [Suspect]
     Active Substance: PREDNISONE
     Indication: Childhood asthma
     Route: 065
  2. ALBUTEROL [Concomitant]
     Active Substance: ALBUTEROL
     Indication: Childhood asthma

REACTIONS (4)
  - Nocardiosis [Unknown]
  - COPA syndrome [Unknown]
  - Candida infection [Unknown]
  - Moraxella infection [Unknown]
